FAERS Safety Report 5889938-6 (Version None)
Quarter: 2008Q3

REPORT INFORMATION
  Report Type: 
  Country: None (occurrence: None)
  Receive Date: 20080919
  Receipt Date: 20080916
  Transmission Date: 20090109
  Serious: Yes (Other)
  Sender: FDA-Public Use
  Company Number: PHEH2008US07537

PATIENT
  Sex: Female
  Weight: 65.079 kg

DRUGS (1)
  1. SANDOSTATIN [Suspect]
     Dosage: 40 MG EVERY 3 WEEKS
     Route: 030
     Dates: start: 20080401

REACTIONS (2)
  - CATARACT OPERATION [None]
  - SCAR [None]
